FAERS Safety Report 4648376-4 (Version None)
Quarter: 2005Q2

REPORT INFORMATION
  Report Type: 
  Country: None (occurrence: None)
  Receive Date: 20050427
  Receipt Date: 20050408
  Transmission Date: 20051028
  Serious: Yes (Hospitalization)
  Sender: FDA-Public Use
  Company Number: JP_050306176

PATIENT
  Age: 75 Year
  Sex: Female
  Weight: 50 kg

DRUGS (5)
  1. PERMAX [Suspect]
     Indication: PARKINSON'S DISEASE
     Dosage: 1500 UG DAY
  2. ZYPREXA [Suspect]
     Indication: DELUSION
     Dosage: 2.5 MG DAY
     Dates: start: 20040223, end: 20040310
  3. MENESIT [Concomitant]
  4. SOLANAX (ALPRAZOLAM DUM) [Concomitant]
  5. CLONAZEPAM [Concomitant]

REACTIONS (3)
  - DELUSION [None]
  - HALLUCINATION [None]
  - PARKINSONISM [None]
